FAERS Safety Report 25573612 (Version 1)
Quarter: 2025Q3

REPORT INFORMATION
  Report Type: Spontaneous
  Country: US (occurrence: None)
  Receive Date: 20250717
  Receipt Date: 20250717
  Transmission Date: 20251020
  Serious: Yes (Other)
  Sender: FDA-CTU
  Company Number: None

PATIENT
  Age: 61 Year
  Sex: Male
  Weight: 91.08 kg

DRUGS (5)
  1. TRUXIMA [Suspect]
     Active Substance: RITUXIMAB-ABBS
     Indication: Granulomatosis with polyangiitis
     Route: 041
     Dates: start: 20250505, end: 20250505
  2. MYCOPHENOLATE MOFETIL [Suspect]
     Active Substance: MYCOPHENOLATE MOFETIL
  3. PREDNISONE [Suspect]
     Active Substance: PREDNISONE
  4. CLOTRIMAZOLE [Suspect]
     Active Substance: CLOTRIMAZOLE
  5. MUPIROCIN [Suspect]
     Active Substance: MUPIROCIN

REACTIONS (5)
  - Vasculitis [None]
  - Constipation [None]
  - Sinus operation [None]
  - Dysphonia [None]
  - Dysphonia [None]

NARRATIVE: CASE EVENT DATE: 20250630
